FAERS Safety Report 9283282 (Version 1)
Quarter: 2013Q2

REPORT INFORMATION
  Report Type: Report from Study
  Country: AU (occurrence: AU)
  Receive Date: 20130510
  Receipt Date: 20130510
  Transmission Date: 20140414
  Serious: Yes (Other)
  Sender: FDA-Public Use
  Company Number: PHHY2013AU031773

PATIENT
  Age: 86 Year
  Sex: Female

DRUGS (6)
  1. ACLASTA [Suspect]
     Dosage: 5 MG, UNK
     Route: 042
     Dates: start: 20090827
  2. ACLASTA [Suspect]
     Dosage: 5 MG, UNK
     Route: 042
     Dates: start: 20101023
  3. ACLASTA [Suspect]
     Dosage: 5 MG, UNK
     Route: 042
     Dates: start: 20120123
  4. OROXINE [Concomitant]
     Dosage: 1 DF, MANE
  5. OSTELIN VITAMIN D [Concomitant]
     Dosage: 3 DF, MANE
  6. PRADAXA [Concomitant]
     Dosage: 1 DF, BID

REACTIONS (4)
  - Carotid artery stenosis [Unknown]
  - White matter lesion [Unknown]
  - Rib fracture [Unknown]
  - Malaise [Unknown]
